FAERS Safety Report 15901583 (Version 2)
Quarter: 2019Q3

REPORT INFORMATION
  Report Type: Spontaneous
  Country: HU (occurrence: HU)
  Receive Date: 20190201
  Receipt Date: 20190802
  Transmission Date: 20191004
  Serious: Yes (Hospitalization, Other)
  Sender: FDA-Public Use
  Company Number: HU-MYLANLABS-2019M1006052

PATIENT
  Age: 71 Year
  Sex: Female

DRUGS (12)
  1. BISOPROLOL [Suspect]
     Active Substance: BISOPROLOL
     Indication: PRODUCT USED FOR UNKNOWN INDICATION
     Dosage: 5 MG, QD
     Route: 065
  2. ACETYLSALICYLIC ACID [Suspect]
     Active Substance: ASPIRIN
     Indication: PRODUCT USED FOR UNKNOWN INDICATION
     Dosage: 100 MG, QD
     Route: 065
  3. CLOPIDOGREL [Concomitant]
     Active Substance: CLOPIDOGREL BISULFATE
     Indication: ACUTE CORONARY SYNDROME
     Dosage: 75 MILLIGRAM, QD
     Route: 065
  4. DICLOFENAC [Suspect]
     Active Substance: DICLOFENAC
     Indication: PRODUCT USED FOR UNKNOWN INDICATION
     Dosage: UNK
     Route: 041
  5. AMLODIPINE [Suspect]
     Active Substance: AMLODIPINE BESYLATE
     Indication: PRODUCT USED FOR UNKNOWN INDICATION
     Dosage: 5 MG, QD IN THE EVENING
     Route: 065
  6. CLOPIDOGREL [Concomitant]
     Active Substance: CLOPIDOGREL BISULFATE
     Dosage: 40 MILLIGRAM, QD
     Route: 065
  7. ESOMEPRAZOLE. [Suspect]
     Active Substance: ESOMEPRAZOLE MAGNESIUM
     Indication: PRODUCT USED FOR UNKNOWN INDICATION
     Dosage: 40 MG, QD
     Route: 065
  8. NEBIVOLOL. [Suspect]
     Active Substance: NEBIVOLOL
     Indication: ACUTE CORONARY SYNDROME
     Dosage: 5 MG, QD
     Route: 065
  9. LISINOPRIL. [Suspect]
     Active Substance: LISINOPRIL
     Indication: PRODUCT USED FOR UNKNOWN INDICATION
     Dosage: 5 MG, QD IN THE MORNING
     Route: 065
  10. ROSUVASTATIN. [Suspect]
     Active Substance: ROSUVASTATIN
     Indication: PRODUCT USED FOR UNKNOWN INDICATION
     Dosage: 40 MG, QD
     Route: 065
  11. METFORMIN [Suspect]
     Active Substance: METFORMIN HYDROCHLORIDE
     Indication: PRODUCT USED FOR UNKNOWN INDICATION
     Dosage: 1000 MG, BID
     Route: 065
  12. AMLODIPINE W/INDAPAMIDE/PERINDOPRIL [Concomitant]
     Active Substance: AMLODIPINE\INDAPAMIDE\PERINDOPRIL
     Indication: ACUTE CORONARY SYNDROME

REACTIONS (28)
  - Ventricular extrasystoles [Unknown]
  - Chronic obstructive pulmonary disease [Unknown]
  - Pericardial effusion [Unknown]
  - Transient ischaemic attack [Unknown]
  - Type 2 diabetes mellitus [Unknown]
  - Pneumonia [Recovered/Resolved]
  - Vascular encephalopathy [Unknown]
  - Breath sounds abnormal [Unknown]
  - Acute myocardial infarction [Unknown]
  - Dyspnoea exertional [Unknown]
  - Tachycardia [Unknown]
  - Hypertension [Unknown]
  - Chest discomfort [Unknown]
  - Chest pain [Unknown]
  - Atrial fibrillation [Unknown]
  - Non-Hodgkin^s lymphoma [Unknown]
  - Pulmonary hypertension [Unknown]
  - Pyrexia [Unknown]
  - Pleural effusion [Unknown]
  - Arteriosclerosis [Unknown]
  - Dyspnoea [Unknown]
  - Cardiac disorder [Unknown]
  - Supraventricular extrasystoles [Unknown]
  - Sinus rhythm [Not Recovered/Not Resolved]
  - Abdominal discomfort [Unknown]
  - Oedema peripheral [Unknown]
  - Condition aggravated [Unknown]
  - Glycosylated haemoglobin increased [Unknown]

NARRATIVE: CASE EVENT DATE: 20171204
